FAERS Safety Report 20411252 (Version 1)
Quarter: 2022Q1

REPORT INFORMATION
  Report Type: Spontaneous
  Country: US (occurrence: None)
  Receive Date: 20220201
  Receipt Date: 20220201
  Transmission Date: 20220424
  Serious: No
  Sender: FDA-Public Use
  Company Number: None

PATIENT
  Age: 81 Year
  Sex: Male

DRUGS (2)
  1. SULFAMETHIZOLE\TRIMETHOPRIM [Suspect]
     Active Substance: SULFAMETHIZOLE\TRIMETHOPRIM
     Indication: Haematuria
     Dosage: 1 TAB ONCE PO?
     Route: 048
     Dates: start: 20210607, end: 20210607
  2. SULFAMETHIZOLE\TRIMETHOPRIM [Suspect]
     Active Substance: SULFAMETHIZOLE\TRIMETHOPRIM
     Indication: Infection prophylaxis

REACTIONS (8)
  - Oral mucosal blistering [None]
  - Pyrexia [None]
  - Chills [None]
  - Oropharyngeal pain [None]
  - Pain of skin [None]
  - Rash [None]
  - Skin ulcer [None]
  - Tenderness [None]

NARRATIVE: CASE EVENT DATE: 20210611
